FAERS Safety Report 5479391-9 (Version None)
Quarter: 2007Q4

REPORT INFORMATION
  Report Type: 
  Country: None (occurrence: None)
  Receive Date: 20071003
  Receipt Date: 20071003
  Transmission Date: 20080405
  Serious: Yes (Life-Threatening, Hospitalization)
  Sender: FDA-Public Use
  Company Number: None

PATIENT
  Age: 46 Year
  Sex: Female

DRUGS (2)
  1. ISO SULPHAN BLUE 1% -10MG/ML- TYCO HEALTHCARE [Suspect]
     Indication: BIOPSY LYMPH GLAND
     Dosage: 5 ML ONCE IV
     Route: 042
     Dates: start: 20070913, end: 20070913
  2. ISO SULPHAN BLUE 1% -10MG/ML- TYCO HEALTHCARE [Suspect]
     Indication: MODIFIED RADICAL MASTECTOMY
     Dosage: 5 ML ONCE IV
     Route: 042
     Dates: start: 20070913, end: 20070913

REACTIONS (4)
  - CARDIO-RESPIRATORY ARREST [None]
  - DRUG HYPERSENSITIVITY [None]
  - PROCEDURAL COMPLICATION [None]
  - TACHYCARDIA [None]
